FAERS Safety Report 9414946 (Version 2)
Quarter: 2013Q3

REPORT INFORMATION
  Report Type: Spontaneous
  Country: JP (occurrence: JP)
  Receive Date: 20130723
  Receipt Date: 20130813
  Transmission Date: 20140515
  Serious: Yes (Hospitalization)
  Sender: FDA-Public Use
  Company Number: JP-BAYER-2013-088945

PATIENT
  Age: 70 Year
  Sex: Male
  Weight: 61 kg

DRUGS (8)
  1. STIVARGA [Suspect]
     Indication: COLORECTAL CANCER
     Dosage: 160 MG, QD (ON FOR 3 WEEKS AND OFF FOR 1 WEEK)
     Route: 048
     Dates: start: 20130705, end: 20130718
  2. LASIX [Concomitant]
     Dosage: DAILY DOSE 20 MG
     Route: 048
     Dates: start: 20120605
  3. BAYASPIRIN [Concomitant]
     Dosage: DAILY DOSE 100 MG
     Route: 048
     Dates: start: 20120605
  4. CRESTOR [Concomitant]
     Dosage: DAILY DOSE 5 MG
     Route: 048
     Dates: start: 20120605
  5. TRAMAL [Concomitant]
     Dosage: DAILY DOSE 150 MG
     Route: 048
     Dates: start: 20130419
  6. MAGMITT [Concomitant]
     Dosage: DAILY DOSE 2 G
     Route: 048
     Dates: start: 20120605
  7. LYRICA [Concomitant]
     Dosage: DAILY DOSE 300 MG
     Route: 048
     Dates: start: 20121226
  8. WARFARIN [Concomitant]
     Dosage: DAILY DOSE 1.5 MG
     Route: 048
     Dates: start: 20130206, end: 20130717

REACTIONS (3)
  - Rhabdomyolysis [Recovered/Resolved]
  - Oral pain [Not Recovered/Not Resolved]
  - Palmar-plantar erythrodysaesthesia syndrome [Recovering/Resolving]
